FAERS Safety Report 15426810 (Version 2)
Quarter: 2018Q4

REPORT INFORMATION
  Report Type: Report from Study
  Country: US (occurrence: US)
  Receive Date: 20180925
  Receipt Date: 20181009
  Transmission Date: 20190204
  Serious: Yes (Death, Life-Threatening, Other)
  Sender: FDA-Public Use
  Company Number: US-TEVA-2018-US-957634

PATIENT
  Age: 66 Year
  Sex: Male

DRUGS (1)
  1. METAXALONE. [Suspect]
     Active Substance: METAXALONE
     Route: 065

REACTIONS (8)
  - Acute kidney injury [Unknown]
  - Coma [Unknown]
  - Hyperreflexia [Unknown]
  - Tremor [Unknown]
  - Toxicity to various agents [Fatal]
  - Depressed level of consciousness [Unknown]
  - Delirium [Unknown]
  - Hypotension [Unknown]
